FAERS Safety Report 16098193 (Version 2)
Quarter: 2019Q1

REPORT INFORMATION
  Report Type: Report from Study
  Country: None (occurrence: US)
  Receive Date: 20190321
  Receipt Date: 20190331
  Transmission Date: 20190418
  Serious: Yes (Hospitalization, Other)
  Sender: FDA-Public Use
  Company Number: US-ABBVIE-19K-163-2658478-00

PATIENT
  Age: 58 Year
  Sex: Male
  Weight: 90.8 kg

DRUGS (2)
  1. HUMIRA [Suspect]
     Active Substance: ADALIMUMAB
     Indication: PSORIASIS
     Route: 058
     Dates: start: 2010
  2. HUMIRA [Suspect]
     Active Substance: ADALIMUMAB
     Indication: PSORIASIS

REACTIONS (13)
  - Tumour invasion [Recovered/Resolved]
  - Diverticulitis [Recovered/Resolved]
  - Myocardial infarction [Recovered/Resolved]
  - Mobility decreased [Recovered/Resolved]
  - Gait disturbance [Recovered/Resolved]
  - Colon cancer [Unknown]
  - Coronary artery occlusion [Recovered/Resolved]
  - Anal incontinence [Recovered/Resolved]
  - Diverticular perforation [Recovered/Resolved]
  - Large intestine perforation [Recovered/Resolved]
  - Adenocarcinoma of colon [Recovered/Resolved]
  - Procedural pain [Recovered/Resolved]
  - Malignant polyp [Recovered/Resolved]

NARRATIVE: CASE EVENT DATE: 2013
